FAERS Safety Report 18279297 (Version 2)
Quarter: 2020Q4

REPORT INFORMATION
  Report Type: Report from Study
  Country: DE (occurrence: DE)
  Receive Date: 20200917
  Receipt Date: 20201026
  Transmission Date: 20210113
  Serious: Yes (Hospitalization, Other)
  Sender: FDA-Public Use
  Company Number: DE-SEATTLE GENETICS-2020SGN04143

PATIENT

DRUGS (6)
  1. BRENTUXIMAB VEDOTIN-MPI [Suspect]
     Active Substance: BRENTUXIMAB VEDOTIN
     Indication: HODGKIN^S DISEASE
     Dosage: UNK
     Route: 065
     Dates: start: 20200831
  2. DOXORUBICIN [Suspect]
     Active Substance: DOXORUBICIN
     Indication: HODGKIN^S DISEASE
     Dosage: 85.5 MILLIGRAM/SQ. METER
     Route: 065
     Dates: start: 20200901
  3. DEXAMETHASONE                      /00016002/ [Suspect]
     Active Substance: DEXAMETHASONE SODIUM PHOSPHATE
     Indication: HODGKIN^S DISEASE
     Dosage: UNK
     Route: 065
     Dates: start: 20200901
  4. CYCLOPHOSPHAMIDE. [Suspect]
     Active Substance: CYCLOPHOSPHAMIDE
     Indication: HODGKIN^S DISEASE
     Dosage: 1587.6 MILLIGRAM/SQ. METER
     Route: 065
     Dates: start: 20200901
  5. DACARBAZINE                        /00372802/ [Suspect]
     Active Substance: DACARBAZINE CITRATE
     Indication: HODGKIN^S DISEASE
     Dosage: 1221.0 MG/M2
     Route: 042
     Dates: start: 20200902
  6. ETOPOSIDE                          /00511902/ [Suspect]
     Active Substance: ETOPOSIDE
     Indication: HODGKIN^S DISEASE
     Dosage: 732.6 MG/M2
     Route: 065
     Dates: start: 20200901

REACTIONS (6)
  - Body temperature increased [Not Recovered/Not Resolved]
  - Vomiting [Not Recovered/Not Resolved]
  - Escherichia sepsis [Recovered/Resolved]
  - Leukopenia [Not Recovered/Not Resolved]
  - Anaemia [Not Recovered/Not Resolved]
  - Thrombocytopenia [Not Recovered/Not Resolved]

NARRATIVE: CASE EVENT DATE: 20200909
